FAERS Safety Report 13555420 (Version 2)
Quarter: 2017Q3

REPORT INFORMATION
  Report Type: Report from Study
  Country: US (occurrence: US)
  Receive Date: 20170517
  Receipt Date: 20170918
  Transmission Date: 20171127
  Serious: Yes (Other)
  Sender: FDA-Public Use
  Company Number: US-ACADIA PHARMACEUTICALS INC.-ACA-2017-002222

PATIENT
  Age: 76 Year
  Sex: Female

DRUGS (2)
  1. NUPLAZID [Suspect]
     Active Substance: PIMAVANSERIN TARTRATE
     Indication: MALAISE
  2. NUPLAZID [Suspect]
     Active Substance: PIMAVANSERIN TARTRATE
     Indication: PARKINSON^S DISEASE PSYCHOSIS
     Dosage: 34 MG, QD
     Route: 048
     Dates: start: 20161016

REACTIONS (7)
  - Dizziness [Unknown]
  - Malaise [Unknown]
  - Nausea [Unknown]
  - Hallucination [Unknown]
  - Depressed level of consciousness [Unknown]
  - Off label use [Unknown]
  - Sedation [Unknown]

NARRATIVE: CASE EVENT DATE: 20170203
